FAERS Safety Report 4775972-6 (Version None)
Quarter: 2005Q3

REPORT INFORMATION
  Report Type: 
  Country: None (occurrence: None)
  Receive Date: 20050914
  Receipt Date: 20050316
  Transmission Date: 20060218
  Serious: Yes (Hospitalization)
  Sender: FDA-Public Use
  Company Number: 163-20785-05030484

PATIENT
  Age: 67 Year
  Sex: Male

DRUGS (12)
  1. THALOMID [Suspect]
     Indication: MULTIPLE MYELOMA
     Dosage: 200 MG, DAILY, ORAL
     Route: 048
     Dates: start: 20040805, end: 20040830
  2. LOPID (GEMFIBROZIL) (UNKNOWN) [Concomitant]
  3. LIPITOR [Concomitant]
  4. ATENOLOL [Concomitant]
  5. LISINOPRIL [Concomitant]
  6. ASPIRIN [Concomitant]
  7. HYDROCHLOROTHIAZIDE [Concomitant]
  8. PROTONIX [Concomitant]
  9. INSULIN [Concomitant]
  10. SYNTHROID [Concomitant]
  11. FLOMAX [Concomitant]
  12. DECADRON [Concomitant]

REACTIONS (7)
  - DERMATITIS EXFOLIATIVE [None]
  - DIZZINESS [None]
  - NEUTROPENIA [None]
  - ORTHOSTATIC HYPOTENSION [None]
  - PYREXIA [None]
  - RASH [None]
  - SKIN EXFOLIATION [None]
